FAERS Safety Report 13716264 (Version 2)
Quarter: 2018Q2

REPORT INFORMATION
  Report Type: Report from Study
  Country: None (occurrence: BR)
  Receive Date: 20170705
  Receipt Date: 20180428
  Transmission Date: 20180711
  Serious: Yes (Other)
  Sender: FDA-Public Use
  Company Number: BR-ABBVIE-17K-020-2026034-00

PATIENT
  Age: 68 Year
  Sex: Female
  Weight: 71 kg

DRUGS (3)
  1. HUMIRA [Suspect]
     Active Substance: ADALIMUMAB
     Route: 058
  2. DIPYRONE [Concomitant]
     Active Substance: DIPYRONE
     Indication: PAIN
     Route: 048
  3. HUMIRA [Suspect]
     Active Substance: ADALIMUMAB
     Indication: RHEUMATOID ARTHRITIS
     Route: 058
     Dates: start: 20100812

REACTIONS (9)
  - Dizziness [Not Recovered/Not Resolved]
  - Influenza [Recovering/Resolving]
  - Blood pressure fluctuation [Unknown]
  - Pain in extremity [Recovered/Resolved]
  - Diabetes mellitus [Recovering/Resolving]
  - Pain in extremity [Recovered/Resolved]
  - Blood cholesterol increased [Recovering/Resolving]
  - Depression [Not Recovered/Not Resolved]
  - Hypertension [Recovering/Resolving]

NARRATIVE: CASE EVENT DATE: 2011
